FAERS Safety Report 18742925 (Version 1)
Quarter: 2021Q1

REPORT INFORMATION
  Report Type: Spontaneous
  Country: US (occurrence: US)
  Receive Date: 20210114
  Receipt Date: 20210114
  Transmission Date: 20210419
  Serious: No
  Sender: FDA-Public Use
  Company Number: US-NOVOPROD-751652

PATIENT
  Age: 74 Year
  Sex: Female

DRUGS (1)
  1. OZEMPIC [Suspect]
     Active Substance: SEMAGLUTIDE
     Indication: TYPE 2 DIABETES MELLITUS
     Dosage: 1 MG
     Route: 058
     Dates: start: 20200727, end: 2020

REACTIONS (4)
  - Nervousness [Recovered/Resolved]
  - Off label use [Unknown]
  - Product dispensing error [Unknown]
  - Sensitive skin [Recovered/Resolved]

NARRATIVE: CASE EVENT DATE: 202007
